FAERS Safety Report 12158875 (Version 1)
Quarter: 2016Q1

REPORT INFORMATION
  Report Type: Spontaneous
  Country: US (occurrence: US)
  Receive Date: 20160308
  Receipt Date: 20160308
  Transmission Date: 20160526
  Serious: No
  Sender: FDA-Public Use
  Company Number: US-JNJFOC-20160216869

PATIENT
  Age: 83 Year
  Sex: Male
  Weight: 95.26 kg

DRUGS (1)
  1. TYLENOL EXTRA STRENGTH [Suspect]
     Active Substance: ACETAMINOPHEN
     Indication: PAIN
     Dosage: 2 CAPLETS, FOR A WEEK
     Route: 048

REACTIONS (2)
  - Hypertension [Unknown]
  - Inappropriate schedule of drug administration [Unknown]
